FAERS Safety Report 8458253-9 (Version None)
Quarter: 2012Q2

REPORT INFORMATION
  Report Type: 
  Country: None (occurrence: None)
  Receive Date: 20120622
  Receipt Date: 20120618
  Transmission Date: 20120825
  Serious: No
  Sender: FDA-Public Use
  Company Number: US-BAYER-2012-060816

PATIENT
  Age: 45 Year
  Sex: Female
  Weight: 82 kg

DRUGS (4)
  1. ALEVE (CAPLET) [Suspect]
     Indication: PRODUCT USED FOR UNKNOWN INDICATION
  2. ORAL CONTRACEPTIVE NOS [Concomitant]
  3. PROZAC [Concomitant]
  4. EXTRA STRENGTH TYLENOL [Concomitant]

REACTIONS (1)
  - DIZZINESS [None]
